FAERS Safety Report 8270771-5 (Version None)
Quarter: 2012Q2

REPORT INFORMATION
  Report Type: 
  Country: None (occurrence: None)
  Receive Date: 20120410
  Receipt Date: 20120326
  Transmission Date: 20120825
  Serious: Yes (Hospitalization)
  Sender: FDA-Public Use
  Company Number: ES-ROCHE-1052949

PATIENT
  Age: 67 Year
  Sex: Female

DRUGS (1)
  1. XELODA [Suspect]
     Indication: COLON CANCER METASTATIC
     Route: 065
     Dates: start: 20101201, end: 20110223

REACTIONS (3)
  - ODYNOPHAGIA [None]
  - STOMATITIS [None]
  - ASTHENIA [None]
